FAERS Safety Report 19834941 (Version 2)
Quarter: 2021Q4

REPORT INFORMATION
  Report Type: Spontaneous
  Country: JP (occurrence: None)
  Receive Date: 20210915
  Receipt Date: 20211118
  Transmission Date: 20220303
  Serious: Yes (Other)
  Sender: FDA-Public Use
  Company Number: 2021A721627

PATIENT
  Age: 60 Year
  Sex: Female

DRUGS (1)
  1. IMFINZI [Suspect]
     Active Substance: DURVALUMAB
     Indication: Non-small cell lung cancer
     Dosage: DURVALUMAB (GENETICAL RECOMBINATION):500MG
     Route: 041

REACTIONS (2)
  - Pneumonitis [Unknown]
  - Metastases to central nervous system [Unknown]
